FAERS Safety Report 8240731-9 (Version None)
Quarter: 2012Q1

REPORT INFORMATION
  Report Type: 
  Country: None (occurrence: None)
  Receive Date: 20120328
  Receipt Date: 20120320
  Transmission Date: 20120608
  Serious: Yes (Congenital Anomaly)
  Sender: FDA-Public Use
  Company Number: US-BIOMARINP-002344

PATIENT
  Sex: Female

DRUGS (3)
  1. SYNTHROID [Concomitant]
     Indication: HYPOTHYROIDISM
     Route: 064
  2. KUVAN [Suspect]
     Indication: PHENYLKETONURIA
     Route: 064
     Dates: start: 20091102
  3. ZOLOFT [Concomitant]
     Indication: ANXIETY
     Route: 064

REACTIONS (1)
  - CARDIAC MURMUR [None]
